FAERS Safety Report 6237133-3 (Version None)
Quarter: 2009Q2

REPORT INFORMATION
  Report Type: 
  Country: None (occurrence: None)
  Receive Date: 20090619
  Receipt Date: 20090422
  Transmission Date: 20091009
  Serious: No
  Sender: FDA-Public Use
  Company Number: US-ASTRAZENECA-2009UW10089

PATIENT
  Age: 59 Year
  Sex: Female

DRUGS (5)
  1. SYMBICORT [Suspect]
     Dosage: 160/4.5 TWO PUFFS TWO TIMES A DAY
     Route: 055
  2. SYNTHROID [Concomitant]
  3. XYZAL [Concomitant]
  4. PATANASE [Concomitant]
  5. VITAMINS [Concomitant]

REACTIONS (2)
  - ERYTHEMA [None]
  - SKIN WARM [None]
